FAERS Safety Report 7898712-0 (Version None)
Quarter: 2011Q4

REPORT INFORMATION
  Report Type: 
  Country: None (occurrence: None)
  Receive Date: 20111107
  Receipt Date: 20101214
  Transmission Date: 20120403
  Serious: No
  Sender: FDA-Public Use
  Company Number: US-ABBOTT-10P-163-0692025-00

PATIENT
  Age: 77 Year
  Sex: Female
  Weight: 72.64 kg

DRUGS (10)
  1. FISH OIL [Suspect]
     Dosage: STOPPED FOR 1 WEEK
  2. FISH OIL [Suspect]
     Indication: BLOOD CHOLESTEROL INCREASED
  3. TRICOR [Suspect]
     Indication: BLOOD CHOLESTEROL INCREASED
     Dosage: TAKES WITH DINNER
     Route: 048
  4. TRICOR [Suspect]
     Dosage: TAKES WITH DINNER; STOPPED FOR 1 WEEK
     Route: 048
  5. AMITRIPTYLINE HCL [Concomitant]
     Indication: ARTHRITIS
     Route: 048
  6. ATENOLOL [Concomitant]
     Indication: SYNCOPE
     Dosage: 1 TAB AM/AND 2 TABS QHS
     Route: 048
  7. GLUCOSAMINE [Suspect]
     Indication: PRODUCT USED FOR UNKNOWN INDICATION
     Dosage: STOPPED FOR 1 WEEK
  8. MULTI-VITAMIN [Concomitant]
     Indication: PRODUCT USED FOR UNKNOWN INDICATION
     Route: 048
  9. GLUCOSAMINE [Suspect]
  10. ASPIRIN [Concomitant]
     Indication: BLOOD CHOLESTEROL INCREASED
     Dosage: AT BEDTIME
     Route: 048

REACTIONS (4)
  - ERUCTATION [None]
  - PAIN [None]
  - MOBILITY DECREASED [None]
  - NAUSEA [None]
